FAERS Safety Report 9565787 (Version 1)
Quarter: 2013Q3

REPORT INFORMATION
  Report Type: Spontaneous
  Country: FR (occurrence: FR)
  Receive Date: 20130930
  Receipt Date: 20130930
  Transmission Date: 20140515
  Serious: Yes (Hospitalization)
  Sender: FDA-Public Use
  Company Number: FR-GLAXOSMITHKLINE-B0924639A

PATIENT
  Age: 44 Year
  Sex: Male

DRUGS (2)
  1. DEROXAT [Suspect]
     Indication: PRODUCT USED FOR UNKNOWN INDICATION
     Route: 048
     Dates: start: 201306, end: 20130901
  2. PREVISCAN (FLUINDIONE) [Concomitant]
     Route: 065

REACTIONS (2)
  - Cerebral vasoconstriction [Recovered/Resolved]
  - Headache [Recovered/Resolved]
